FAERS Safety Report 15982484 (Version 3)
Quarter: 2019Q2

REPORT INFORMATION
  Report Type: Spontaneous
  Country: JP (occurrence: JP)
  Receive Date: 20190219
  Receipt Date: 20190430
  Transmission Date: 20190711
  Serious: Yes (Death)
  Sender: FDA-Public Use
  Company Number: JP-DSJP-DSJ-2019-105885AA

PATIENT

DRUGS (3)
  1. FENTANYL                           /00174602/ [Concomitant]
     Active Substance: FENTANYL
     Dosage: 0.3MG/DAY
     Route: 065
  2. LIXIANA OD TABLETS 30MG [Suspect]
     Active Substance: EDOXABAN TOSYLATE
     Indication: DEEP VEIN THROMBOSIS
     Dosage: 30 MG, QD
     Route: 048
  3. OXYCODONE [Concomitant]
     Active Substance: OXYCODONE
     Dosage: 10MG/DAY
     Route: 065

REACTIONS (1)
  - Death [Fatal]
